FAERS Safety Report 4621669-2 (Version None)
Quarter: 2005Q1

REPORT INFORMATION
  Report Type: 
  Country: None (occurrence: None)
  Receive Date: 20050328
  Receipt Date: 20050317
  Transmission Date: 20050727
  Serious: Yes (Other)
  Sender: FDA-Public Use
  Company Number: 2005046532

PATIENT
  Sex: Female
  Weight: 67.586 kg

DRUGS (1)
  1. DEPO-PROVERA [Suspect]
     Indication: CONTRACEPTION
     Dosage: 150 MG, Q12WKS INTERVAL: EVERY 12 WEEKS
     Dates: start: 20021001, end: 20030701

REACTIONS (3)
  - ALOPECIA [None]
  - CONDITION AGGRAVATED [None]
  - SYSTEMIC LUPUS ERYTHEMATOSUS [None]
